FAERS Safety Report 14557839 (Version 2)
Quarter: 2018Q2

REPORT INFORMATION
  Report Type: Report from Study
  Country: US (occurrence: US)
  Receive Date: 20180221
  Receipt Date: 20180413
  Transmission Date: 20180711
  Serious: Yes (Disabling, Other)
  Sender: FDA-Public Use
  Company Number: US-REGENERON PHARMACEUTICALS, INC.-2017-29343

PATIENT

DRUGS (7)
  1. EYLEA [Suspect]
     Active Substance: AFLIBERCEPT
     Indication: NEOVASCULAR AGE-RELATED MACULAR DEGENERATION
     Dosage: INITIAL START DATE FOR THE LEFT EYE (OS), EVERY 6 WEEKS
     Route: 031
     Dates: start: 20150929
  2. NEPHRONEX [Concomitant]
     Indication: PRODUCT USED FOR UNKNOWN INDICATION
     Dosage: UNK
  3. EYLEA [Suspect]
     Active Substance: AFLIBERCEPT
     Dosage: UNK, EVERY 6 WEEKS, LEFT EYE
     Route: 031
     Dates: start: 20180123, end: 20180123
  4. EYLEA [Suspect]
     Active Substance: AFLIBERCEPT
     Indication: CHOROIDAL NEOVASCULARISATION
     Dosage: INITIAL START DATE FOR THE RIGHT EYE (OD), EVERY 6 WEEKS
     Route: 031
     Dates: start: 20151006
  5. ASPIRIN                            /00002701/ [Concomitant]
     Active Substance: ASPIRIN
     Indication: PRODUCT USED FOR UNKNOWN INDICATION
     Dosage: UNK
  6. EYLEA [Suspect]
     Active Substance: AFLIBERCEPT
     Dosage: 2 MG, EVERY 6 WEEKS, LEFT EYE (OS), THE LAST DOSE PRIOR TO EVENTS
     Route: 031
     Dates: start: 20171214, end: 20171214
  7. ARTIFICIAL TEARS                   /00222401/ [Concomitant]
     Active Substance: PROPYLENE GLYCOL
     Indication: PRODUCT USED FOR UNKNOWN INDICATION
     Dosage: UNK

REACTIONS (6)
  - Vitritis [Not Recovered/Not Resolved]
  - Refusal of treatment by patient [Recovered/Resolved]
  - Blindness transient [Recovered/Resolved]
  - Mental disorder [Recovered/Resolved]
  - Drug dose omission [Recovered/Resolved]
  - Vision blurred [Unknown]

NARRATIVE: CASE EVENT DATE: 20171214
